FAERS Safety Report 5156405-7 (Version None)
Quarter: 2006Q4

REPORT INFORMATION
  Report Type: 
  Country: None (occurrence: None)
  Receive Date: 20061122
  Receipt Date: 20061113
  Transmission Date: 20070319
  Serious: Yes (Other)
  Sender: FDA-Public Use
  Company Number: IL-ABBOTT-06P-082-0350226-00

PATIENT
  Sex: Male

DRUGS (1)
  1. FERROGRADUMET TABLETS [Suspect]
     Indication: DRUG USE FOR UNKNOWN INDICATION
     Route: 048

REACTIONS (9)
  - MOUTH ULCERATION [None]
  - ORAL DISCOMFORT [None]
  - ORAL PAIN [None]
  - ORAL TORUS [None]
  - SCAR [None]
  - SPEECH DISORDER [None]
  - THERMAL BURN [None]
  - TONGUE DISORDER [None]
  - UNEVALUABLE EVENT [None]
